FAERS Safety Report 4622061-7 (Version None)
Quarter: 2005Q1

REPORT INFORMATION
  Report Type: 
  Country: None (occurrence: None)
  Receive Date: 20050328
  Receipt Date: 20050316
  Transmission Date: 20050727
  Serious: Yes (Hospitalization)
  Sender: FDA-Public Use
  Company Number: 2004UW08169

PATIENT
  Age: 51 Year
  Sex: Female
  Weight: 58 kg

DRUGS (7)
  1. CRESTOR [Suspect]
     Indication: HYPERLIPIDAEMIA
     Dosage: 10 MG PO
     Route: 048
     Dates: start: 20040101, end: 20040330
  2. LOTREL [Concomitant]
  3. LEXAPRO [Concomitant]
  4. TRAMADOL HCL [Concomitant]
  5. ALEVE [Concomitant]
  6. AMLODIPINE [Concomitant]
  7. BENAZEPRIL HCL [Concomitant]

REACTIONS (8)
  - COMPARTMENT SYNDROME [None]
  - CRUSH INJURY [None]
  - HAEMATURIA [None]
  - HEADACHE [None]
  - HEPATIC FUNCTION ABNORMAL [None]
  - OEDEMA PERIPHERAL [None]
  - OSTEOARTHRITIS [None]
  - TROPONIN INCREASED [None]
